FAERS Safety Report 19235520 (Version 1)
Quarter: 2021Q2

REPORT INFORMATION
  Report Type: Spontaneous
  Country: US (occurrence: US)
  Receive Date: 20210510
  Receipt Date: 20210510
  Transmission Date: 20210717
  Serious: No
  Sender: FDA-Public Use
  Company Number: US-009507513-2104USA006607

PATIENT
  Sex: Female

DRUGS (1)
  1. JANUVIA [Suspect]
     Active Substance: SITAGLIPTIN PHOSPHATE
     Indication: DIABETES MELLITUS
     Dosage: 100 MG/ ONCE DAILY
     Route: 048

REACTIONS (3)
  - Cholecystectomy [Recovered/Resolved]
  - Product dose omission issue [Unknown]
  - Nervousness [Recovered/Resolved]
